FAERS Safety Report 8227375-X (Version None)
Quarter: 2012Q1

REPORT INFORMATION
  Report Type: 
  Country: None (occurrence: None)
  Receive Date: 20120322
  Receipt Date: 20120308
  Transmission Date: 20120608
  Serious: Yes (Hospitalization, Other)
  Sender: FDA-Public Use
  Company Number: DE-RANBAXY-2012RR-54085

PATIENT
  Sex: Female
  Weight: 72 kg

DRUGS (4)
  1. AZITHROMYCIN [Suspect]
     Indication: PHARYNGITIS
  2. AZITHROMYCIN [Suspect]
     Indication: LARYNGITIS
  3. OFLOXACIN [Suspect]
     Indication: URINARY TRACT INFECTION
     Dosage: UNK
     Route: 048
     Dates: start: 20110505, end: 20110507
  4. AZITHROMYCIN [Suspect]
     Indication: BRONCHITIS BACTERIAL
     Dosage: 250 MG, BID
     Route: 048
     Dates: start: 20110413, end: 20110415

REACTIONS (13)
  - VULVOVAGINAL MYCOTIC INFECTION [None]
  - HEADACHE [None]
  - VAGINAL INFECTION [None]
  - BONE PAIN [None]
  - PYELONEPHRITIS [None]
  - ARTHRALGIA [None]
  - SLEEP DISORDER [None]
  - MYALGIA [None]
  - PYREXIA [None]
  - PELVIC INFLAMMATORY DISEASE [None]
  - VULVITIS [None]
  - LIMB DISCOMFORT [None]
  - CHILLS [None]
